FAERS Safety Report 9001374 (Version 1)
Quarter: 2013Q1

REPORT INFORMATION
  Report Type: Spontaneous
  Country: JP (occurrence: JP)
  Receive Date: 20130107
  Receipt Date: 20130107
  Transmission Date: 20140127
  Serious: Yes (Other)
  Sender: FDA-Public Use
  Company Number: JP-PFIZER INC-2009306721

PATIENT
  Age: 81 Year
  Sex: Male

DRUGS (1)
  1. DETRUSITOL [Suspect]
     Indication: HYPERTONIC BLADDER
     Route: 048

REACTIONS (1)
  - Urinary retention [Recovered/Resolved]
